FAERS Safety Report 8946396 (Version 1)
Quarter: 2012Q4

REPORT INFORMATION
  Report Type: 
  Country: US (occurrence: US)
  Receive Date: 20121204
  Receipt Date: 20121204
  Transmission Date: 20130627
  Serious: No
  Sender: FDA-Public Use
  Company Number: US-AMGEN-USASP2012072055

PATIENT

DRUGS (2)
  1. ENBREL [Suspect]
     Indication: PSORIATIC ARTHROPATHY
     Dosage: 50 mg, qwk
     Dates: start: 20091106, end: 201210
  2. METHOTREXATE [Concomitant]
     Dosage: 2.5 mg, qwk, 8 tablets
     Route: 048
     Dates: start: 2009

REACTIONS (1)
  - Pyrexia [Not Recovered/Not Resolved]
